FAERS Safety Report 14701189 (Version 1)
Quarter: 2018Q1

REPORT INFORMATION
  Report Type: Spontaneous
  Country: US (occurrence: US)
  Receive Date: 20180328
  Receipt Date: 20180328
  Transmission Date: 20180509
  Serious: Yes (Other)
  Sender: FDA-Public Use
  Company Number: None

PATIENT
  Age: 62 Year
  Sex: Female

DRUGS (4)
  1. HYDROCHLOROT [Concomitant]
     Active Substance: HYDROCHLOROTHIAZIDE
  2. LANSOPRAZOLE. [Concomitant]
     Active Substance: LANSOPRAZOLE
  3. HUMIRA [Suspect]
     Active Substance: ADALIMUMAB
     Dosage: ONE PEN EVERY OTHER WEEK SUBCUTANEOUS
     Route: 058
     Dates: start: 20180213
  4. LOSARTAN POT [Concomitant]
     Active Substance: LOSARTAN POTASSIUM

REACTIONS (4)
  - Pain in extremity [None]
  - Abdominal discomfort [None]
  - Contusion [None]
  - Muscle spasms [None]
